FAERS Safety Report 12594152 (Version 1)
Quarter: 2016Q3

REPORT INFORMATION
  Report Type: Spontaneous
  Country: US (occurrence: US)
  Receive Date: 20160726
  Receipt Date: 20160726
  Transmission Date: 20161109
  Serious: No
  Sender: FDA-Public Use
  Company Number: US-MYLANLABS-2016M1012247

PATIENT
  Sex: Female
  Weight: 74.84 kg

DRUGS (2)
  1. SULINDAC TABLETS, USP [Suspect]
     Active Substance: SULINDAC
     Indication: ANTIINFLAMMATORY THERAPY
     Dosage: 200 MG, QD
  2. SULINDAC TABLETS, USP 150 MG [Suspect]
     Active Substance: SULINDAC
     Dosage: 100 MG, QD

REACTIONS (3)
  - Feeling cold [Recovered/Resolved]
  - Tremor [Recovered/Resolved]
  - Dizziness [Recovered/Resolved]
